FAERS Safety Report 7761698-3 (Version None)
Quarter: 2011Q3

REPORT INFORMATION
  Report Type: 
  Country: None (occurrence: None)
  Receive Date: 20110915
  Receipt Date: 20110905
  Transmission Date: 20111222
  Serious: Yes (Other)
  Sender: FDA-Public Use
  Company Number: 2010AT000018

PATIENT
  Age: 62 Year
  Sex: Male

DRUGS (3)
  1. EDEX [Suspect]
     Indication: ERECTILE DYSFUNCTION
     Dosage: 20 UG;ICAN 40 UG;1X;ICAN 20 UG;ICAN
     Dates: start: 20100101
  2. EDEX [Suspect]
     Indication: ERECTILE DYSFUNCTION
     Dosage: 20 UG;ICAN 40 UG;1X;ICAN 20 UG;ICAN
     Dates: start: 20060101, end: 20100101
  3. EDEX [Suspect]
     Indication: ERECTILE DYSFUNCTION
     Dosage: 20 UG;ICAN 40 UG;1X;ICAN 20 UG;ICAN
     Dates: start: 20100101, end: 20100101

REACTIONS (3)
  - PRIAPISM [None]
  - DRUG INEFFECTIVE [None]
  - INTENTIONAL DRUG MISUSE [None]
